FAERS Safety Report 5120881-6 (Version None)
Quarter: 2006Q4

REPORT INFORMATION
  Report Type: 
  Country: None (occurrence: None)
  Receive Date: 20061005
  Receipt Date: 20060713
  Transmission Date: 20070319
  Serious: Yes (Hospitalization)
  Sender: FDA-Public Use
  Company Number: FRWYE140313JUL06

PATIENT
  Age: 38 Year
  Sex: Female
  Weight: 56 kg

DRUGS (1)
  1. ENBREL [Suspect]
     Indication: ANKYLOSING SPONDYLITIS
     Dosage: REPORTEDLY 37 MG TOTAL WEEKLY
     Route: 058
     Dates: start: 20050415, end: 20060604

REACTIONS (3)
  - CENTRAL NERVOUS SYSTEM LESION [None]
  - DEMYELINATION [None]
  - MULTIPLE SCLEROSIS [None]
